FAERS Safety Report 25529845 (Version 5)
Quarter: 2025Q3

REPORT INFORMATION
  Report Type: Spontaneous
  Country: US (occurrence: US)
  Receive Date: 20250708
  Receipt Date: 20250926
  Transmission Date: 20251021
  Serious: No
  Sender: PFIZER
  Company Number: US-PFIZER INC-202500097469

PATIENT
  Age: 78 Year
  Sex: Male
  Weight: 88.45 kg

DRUGS (1)
  1. XELJANZ XR [Suspect]
     Active Substance: TOFACITINIB CITRATE
     Indication: Rheumatoid arthritis

REACTIONS (4)
  - Musculoskeletal stiffness [Unknown]
  - Peripheral swelling [Unknown]
  - Arthralgia [Unknown]
  - Gait disturbance [Unknown]
